FAERS Safety Report 12989358 (Version 2)
Quarter: 2017Q3

REPORT INFORMATION
  Report Type: Spontaneous
  Country: TN (occurrence: TN)
  Receive Date: 20161201
  Receipt Date: 20170721
  Transmission Date: 20171127
  Serious: Yes (Hospitalization, Other)
  Sender: FDA-Public Use
  Company Number: TN-B.I. PHARMACEUTICALS,INC./RIDGEFIELD-2016-BI-081138

PATIENT
  Age: 68 Year
  Sex: Male

DRUGS (3)
  1. MECIR LP [Suspect]
     Active Substance: TAMSULOSIN HYDROCHLORIDE
     Indication: BENIGN PROSTATIC HYPERPLASIA
     Route: 048
     Dates: start: 20161110
  2. CAZZAR [Concomitant]
     Indication: HYPERTENSION
     Route: 048
     Dates: start: 2008
  3. KARDEGIC [Concomitant]
     Active Substance: ASPIRIN LYSINE
     Indication: HYPERTENSION
     Route: 048
     Dates: start: 2008

REACTIONS (3)
  - Abdominal pain upper [Unknown]
  - Loss of consciousness [Recovered/Resolved]
  - Dizziness [Unknown]
